FAERS Safety Report 18669882 (Version 1)
Quarter: 2020Q4

REPORT INFORMATION
  Report Type: Spontaneous
  Country: JP (occurrence: JP)
  Receive Date: 20201228
  Receipt Date: 20201228
  Transmission Date: 20210114
  Serious: Yes (Other)
  Sender: FDA-Public Use
  Company Number: JP-PFIZER INC-2020509802

PATIENT

DRUGS (3)
  1. CORTRIL [Suspect]
     Active Substance: HYDROCORTISONE
     Dosage: UNK
  2. NORDITROPIN [Concomitant]
     Active Substance: SOMATROPIN
     Dosage: UNK
  3. MINIRINMELT [Concomitant]
     Active Substance: DESMOPRESSIN ACETATE
     Dosage: UNK

REACTIONS (2)
  - Blood corticotrophin decreased [Unknown]
  - Contraindicated product administered [Unknown]
